FAERS Safety Report 7161607-4 (Version None)
Quarter: 2010Q4

REPORT INFORMATION
  Report Type: 
  Country: None (occurrence: None)
  Receive Date: 20101215
  Receipt Date: 20101207
  Transmission Date: 20110411
  Serious: Yes (Other)
  Sender: FDA-Public Use
  Company Number: US-AMGEN-USASP2010008124

PATIENT

DRUGS (1)
  1. ENBREL [Suspect]
     Indication: JUVENILE ARTHRITIS
     Dates: start: 20101202, end: 20101201

REACTIONS (7)
  - DYSARTHRIA [None]
  - HYPERHIDROSIS [None]
  - LATEX ALLERGY [None]
  - PRURITUS [None]
  - RASH GENERALISED [None]
  - TACHYCARDIA [None]
  - TREMOR [None]
